FAERS Safety Report 25085909 (Version 1)
Quarter: 2025Q1

REPORT INFORMATION
  Report Type: Spontaneous
  Country: US (occurrence: US)
  Receive Date: 20250317
  Receipt Date: 20250317
  Transmission Date: 20250409
  Serious: Yes (Other)
  Sender: GLENMARK
  Company Number: US-GLENMARK PHARMACEUTICALS-2025GMK098502

PATIENT

DRUGS (2)
  1. ATOMOXETINE HYDROCHLORIDE [Suspect]
     Active Substance: ATOMOXETINE HYDROCHLORIDE
     Indication: Attention deficit hyperactivity disorder
     Dosage: 100 MILLIGRAM, QD (I TAKE  TWO PILLS: THE 100 MG PILL PLUS THE 25 MG PILL PER DAY)
     Route: 048
     Dates: start: 202411, end: 20250207
  2. ATOMOXETINE HYDROCHLORIDE [Suspect]
     Active Substance: ATOMOXETINE HYDROCHLORIDE
     Indication: Attention deficit hyperactivity disorder
     Dosage: 25 MILLIGRAM, QD  (25 MG PILL PER DAY)
     Route: 048
     Dates: start: 202411, end: 20250207

REACTIONS (11)
  - Colitis [Not Recovered/Not Resolved]
  - Melaena [Recovering/Resolving]
  - Feeding disorder [Recovering/Resolving]
  - Gastrointestinal disorder [Not Recovered/Not Resolved]
  - Anal incontinence [Recovering/Resolving]
  - Diarrhoea [Recovering/Resolving]
  - Hyperhidrosis [Recovering/Resolving]
  - Abdominal pain upper [Recovering/Resolving]
  - Flatulence [Recovering/Resolving]
  - Vomiting [Recovering/Resolving]
  - Product use issue [Unknown]

NARRATIVE: CASE EVENT DATE: 20250101
